FAERS Safety Report 16836254 (Version 2)
Quarter: 2019Q3

REPORT INFORMATION
  Report Type: Report from Study
  Country: IT (occurrence: IT)
  Receive Date: 20190921
  Receipt Date: 20190925
  Transmission Date: 20191005
  Serious: Yes (Hospitalization)
  Sender: FDA-Public Use
  Company Number: IT-ACCORD-155385

PATIENT
  Age: 63 Year
  Sex: Male

DRUGS (12)
  1. METFORMIN [Concomitant]
     Active Substance: METFORMIN HYDROCHLORIDE
  2. BRILIQUE [Concomitant]
     Active Substance: TICAGRELOR
     Dosage: STRENGTH: 60 MG
  3. ACETYLSALICYLIC ACID [Concomitant]
     Active Substance: ASPIRIN
     Route: 048
  4. TESTOVIRON [Concomitant]
     Active Substance: TESTOSTERONE
     Dosage: STRENGTH: 250 MG/ML, PROLONGED RELEASE SOLUTION FOR INJECTION
  5. CORTISONE [Concomitant]
     Active Substance: CORTISONE
     Dosage: STRENGTH: 25 MG, 20 TABLETS
  6. ATORVASTATIN [Concomitant]
     Active Substance: ATORVASTATIN
  7. BISOPROLOL [Concomitant]
     Active Substance: BISOPROLOL
  8. EUTIROX [Concomitant]
     Active Substance: LEVOTHYROXINE SODIUM
     Dosage: STRENGTH: 125 MICROGRAMS
  9. MINIRIN/DDAVP [Suspect]
     Active Substance: DESMOPRESSIN ACETATE
     Indication: DIABETES MELLITUS
     Dosage: STRENGTH: 120 MCG
     Route: 048
  10. CANRENONE [Interacting]
     Active Substance: CANRENONE
     Indication: HYPERTENSION
     Route: 048
  11. RAMIPRIL. [Suspect]
     Active Substance: RAMIPRIL
     Indication: HYPERTENSION
     Route: 048
  12. OLEVIA [Concomitant]
     Active Substance: OMEGA-3-ACID ETHYL ESTERS
     Dosage: STRENGTH: 1000 MG

REACTIONS (5)
  - Bradyphrenia [Recovering/Resolving]
  - Hyperkalaemia [Recovering/Resolving]
  - Hypokinesia [Recovering/Resolving]
  - Hyponatraemia [Recovering/Resolving]
  - Drug interaction [Recovering/Resolving]

NARRATIVE: CASE EVENT DATE: 20190801
